FAERS Safety Report 10235337 (Version 1)
Quarter: 2014Q2

REPORT INFORMATION
  Report Type: Spontaneous
  Country: US (occurrence: US)
  Receive Date: 20140613
  Receipt Date: 20140613
  Transmission Date: 20141212
  Serious: No
  Sender: FDA-Public Use
  Company Number: US-PFIZER INC-2014160001

PATIENT
  Age: 69 Year
  Sex: Female
  Weight: 59 kg

DRUGS (9)
  1. PREMPRO [Suspect]
     Indication: MENOPAUSE
     Dosage: 0.625 MG, 1X/DAY
     Route: 048
     Dates: end: 201401
  2. PREMPRO [Suspect]
     Indication: DEPRESSION
  3. PREMPRO [Suspect]
     Indication: ANXIETY
  4. PREMPRO [Suspect]
     Indication: ANGER
  5. PROZAC [Suspect]
     Indication: DEPRESSION
     Dosage: 40 MG, 1X/DAY
  6. HYDROCODONE [Suspect]
     Indication: PELVIC PAIN
     Dosage: 10 MG, UNK
  7. TIZANIDINE [Suspect]
     Indication: MUSCLE RELAXANT THERAPY
     Dosage: UNK
     Dates: end: 201404
  8. JINTELI [Suspect]
     Indication: MENOPAUSE
     Dosage: 5UG/1MG, 1X/DAY
     Dates: start: 201401
  9. WELLBUTRIN [Concomitant]
     Indication: SMOKING CESSATION THERAPY
     Dosage: 300 MG, UNK
     Route: 048

REACTIONS (22)
  - Weight fluctuation [Not Recovered/Not Resolved]
  - Decreased appetite [Not Recovered/Not Resolved]
  - Visual acuity reduced [Not Recovered/Not Resolved]
  - Vision blurred [Not Recovered/Not Resolved]
  - Insomnia [Not Recovered/Not Resolved]
  - Anger [Not Recovered/Not Resolved]
  - Depression [Not Recovered/Not Resolved]
  - Nervousness [Unknown]
  - Grip strength decreased [Not Recovered/Not Resolved]
  - Impaired driving ability [Not Recovered/Not Resolved]
  - Mental disorder [Not Recovered/Not Resolved]
  - Fatigue [Not Recovered/Not Resolved]
  - Pain in extremity [Not Recovered/Not Resolved]
  - Musculoskeletal discomfort [Not Recovered/Not Resolved]
  - Feeling abnormal [Not Recovered/Not Resolved]
  - Confusional state [Not Recovered/Not Resolved]
  - Bradyphrenia [Not Recovered/Not Resolved]
  - Abnormal behaviour [Not Recovered/Not Resolved]
  - Skin wrinkling [Not Recovered/Not Resolved]
  - Apathy [Not Recovered/Not Resolved]
  - Dry skin [Not Recovered/Not Resolved]
  - Fall [Unknown]
